FAERS Safety Report 15242138 (Version 2)
Quarter: 2018Q3

REPORT INFORMATION
  Report Type: Spontaneous
  Country: CA (occurrence: CA)
  Receive Date: 20180806
  Receipt Date: 20180920
  Transmission Date: 20181010
  Serious: Yes (Hospitalization, Other)
  Sender: FDA-Public Use
  Company Number: CA-ROCHE-2164238

PATIENT
  Age: 88 Year
  Sex: Male

DRUGS (6)
  1. ZENHALE [Concomitant]
     Active Substance: FORMOTEROL FUMARATE\MOMETASONE FUROATE
     Indication: PRODUCT USED FOR UNKNOWN INDICATION
     Dosage: 2 DF, BID
     Route: 065
     Dates: start: 20160412
  2. HYDROCORTISONE. [Concomitant]
     Active Substance: HYDROCORTISONE
     Indication: PRODUCT USED FOR UNKNOWN INDICATION
     Dosage: Q3W
     Route: 065
  3. SEEBRI BREEZHALER [Suspect]
     Active Substance: GLYCOPYRROLATE
     Indication: PRODUCT USED FOR UNKNOWN INDICATION
     Dosage: 1 DF, QD, 50 MICRO GRAM
     Route: 065
     Dates: start: 20151001
  4. XOLAIR [Suspect]
     Active Substance: OMALIZUMAB
     Indication: ASTHMA
     Route: 058
     Dates: start: 20160805
  5. THEO?DUR [Concomitant]
     Active Substance: THEOPHYLLINE ANHYDROUS
     Indication: PRODUCT USED FOR UNKNOWN INDICATION
     Dosage: 1 DF, QD
     Route: 065
     Dates: start: 20110511
  6. PREDNISONE. [Suspect]
     Active Substance: PREDNISONE
     Indication: PRODUCT USED FOR UNKNOWN INDICATION
     Dosage: ONCE IN 12 MONTHS, ON A TITRATED DOSE
     Route: 065

REACTIONS (15)
  - Forced expiratory volume decreased [Unknown]
  - Wheezing [Unknown]
  - Addison^s disease [Unknown]
  - Dyspnoea exertional [Unknown]
  - Chronic obstructive pulmonary disease [Unknown]
  - Tachypnoea [Unknown]
  - Joint swelling [Unknown]
  - Asthenia [Unknown]
  - Pneumonia [Unknown]
  - Blood pressure increased [Unknown]
  - Carbon monoxide diffusing capacity decreased [Unknown]
  - Chest discomfort [Unknown]
  - Cough [Unknown]
  - Breath sounds [Unknown]
  - Rales [Unknown]

NARRATIVE: CASE EVENT DATE: 20180816
